FAERS Safety Report 9485607 (Version 1)
Quarter: 2013Q3

REPORT INFORMATION
  Report Type: Other
  Country: US (occurrence: US)
  Receive Date: 20130829
  Receipt Date: 20130829
  Transmission Date: 20140515
  Serious: Yes (Hospitalization)
  Sender: FDA-Public Use
  Company Number: US-US-EMD SERONO, INC.-7232862

PATIENT
  Age: 64 Year
  Sex: Female

DRUGS (8)
  1. INTERFERON BETA-1A [Suspect]
     Indication: MULTIPLE SCLEROSIS
     Route: 030
  2. TIZANIDINE [Suspect]
     Indication: PRODUCT USED FOR UNKNOWN INDICATION
  3. OXAPROZIN [Suspect]
     Indication: ARTHRITIS
  4. HYDROCHLOROTHIAZIDE [Concomitant]
     Indication: PRODUCT USED FOR UNKNOWN INDICATION
  5. LISINOPRIL [Concomitant]
     Indication: PRODUCT USED FOR UNKNOWN INDICATION
  6. SIMVASTATIN [Concomitant]
     Indication: PRODUCT USED FOR UNKNOWN INDICATION
  7. CLONAZEPAM [Concomitant]
     Indication: PRODUCT USED FOR UNKNOWN INDICATION
  8. POLYETHYLENE GLYCOL [Concomitant]
     Indication: CONSTIPATION

REACTIONS (2)
  - Allergic hepatitis [Recovering/Resolving]
  - Drug-induced liver injury [Recovering/Resolving]
